FAERS Safety Report 21681997 (Version 1)
Quarter: 2022Q4

REPORT INFORMATION
  Report Type: Spontaneous
  Country: JP (occurrence: JP)
  Receive Date: 20221205
  Receipt Date: 20221205
  Transmission Date: 20230113
  Serious: Yes (Other)
  Sender: FDA-Public Use
  Company Number: JP-ABBVIE-4223931

PATIENT

DRUGS (3)
  1. RINVOQ [Suspect]
     Active Substance: UPADACITINIB
     Indication: Rheumatoid arthritis
     Route: 048
  2. XELJANZ [Suspect]
     Active Substance: TOFACITINIB CITRATE
     Indication: Rheumatoid arthritis
     Dosage: STRENGTH: 5 MILLIGRAM
     Route: 048
     Dates: start: 202209
  3. PREDONINE [Suspect]
     Active Substance: PREDNISOLONE
     Indication: Sudden hearing loss
     Route: 048

REACTIONS (2)
  - Sudden hearing loss [Recovering/Resolving]
  - Matrix metalloproteinase-3 increased [Unknown]

NARRATIVE: CASE EVENT DATE: 20221101
